FAERS Safety Report 12795538 (Version 3)
Quarter: 2016Q4

REPORT INFORMATION
  Report Type: Report from Study
  Country: US (occurrence: US)
  Receive Date: 20160929
  Receipt Date: 20161117
  Transmission Date: 20170207
  Serious: Yes (Hospitalization)
  Sender: FDA-Public Use
  Company Number: US-JNJFOC-20160929088

PATIENT
  Sex: Male

DRUGS (3)
  1. KEPPRA [Concomitant]
     Active Substance: LEVETIRACETAM
  2. PHENOBARBITAL. [Concomitant]
     Active Substance: PHENOBARBITAL
  3. IMBRUVICA [Suspect]
     Active Substance: IBRUTINIB
     Indication: WALDENSTROM^S MACROGLOBULINAEMIA
     Route: 048
     Dates: start: 20140309

REACTIONS (5)
  - Urinary tract infection [Unknown]
  - Fatigue [Unknown]
  - Cardiac failure congestive [Unknown]
  - Thyroid disorder [Unknown]
  - Dizziness [Unknown]
